FAERS Safety Report 6757626-X (Version None)
Quarter: 2010Q2

REPORT INFORMATION
  Report Type: 
  Country: None (occurrence: None)
  Receive Date: 20100607
  Receipt Date: 20100527
  Transmission Date: 20101027
  Serious: Yes (Hospitalization)
  Sender: FDA-Public Use
  Company Number: ES-JNJFOC-20100600192

PATIENT
  Sex: Male

DRUGS (2)
  1. REMICADE [Suspect]
     Indication: CROHN'S DISEASE
     Dosage: 3 INFUSIONS
     Route: 042
  2. CORTICOSTEROIDS [Suspect]
     Indication: CROHN'S DISEASE
     Route: 042

REACTIONS (2)
  - BLINDNESS [None]
  - HISTIOCYTOSIS HAEMATOPHAGIC [None]
